FAERS Safety Report 9001263 (Version 1)
Quarter: 2013Q1

REPORT INFORMATION
  Report Type: Report from Study
  Country: DE (occurrence: DE)
  Receive Date: 20130107
  Receipt Date: 20130107
  Transmission Date: 20140127
  Serious: Yes (Hospitalization, Other)
  Sender: FDA-Public Use
  Company Number: DE-ABBOTT-13P-062-1030540-00

PATIENT
  Age: 22 Year
  Sex: Female
  Weight: 85 kg

DRUGS (4)
  1. HUMIRA [Suspect]
     Indication: CROHN^S DISEASE
     Route: 058
     Dates: start: 20120514, end: 201210
  2. HUMIRA [Suspect]
     Dates: start: 201211
  3. BUDESONID [Concomitant]
     Indication: CROHN^S DISEASE
     Dates: end: 2012
  4. PREDNISOLONE [Concomitant]
     Indication: CROHN^S DISEASE
     Dosage: 40 -20 MG DAILY
     Dates: end: 2012

REACTIONS (4)
  - Ileal stenosis [Unknown]
  - Crohn^s disease [Recovered/Resolved]
  - Ileitis [Unknown]
  - Drug ineffective [Unknown]
